FAERS Safety Report 6906039-6 (Version None)
Quarter: 2010Q3

REPORT INFORMATION
  Report Type: 
  Country: None (occurrence: None)
  Receive Date: 20100804
  Receipt Date: 20100801
  Transmission Date: 20110219
  Serious: Yes (Death, Hospitalization, Other)
  Sender: FDA-Public Use
  Company Number: PHHO2010DE02457

PATIENT
  Sex: Female
  Weight: 59.5 kg

DRUGS (2)
  1. SANDOSTATIN LAR [Suspect]
     Indication: THYMOMA
     Dosage: 30 MG/ 2 WEEKS
     Route: 030
     Dates: start: 20091120, end: 20091228
  2. PREDNISOLON [Suspect]
     Dosage: 30 MG
     Route: 048
     Dates: start: 20091120

REACTIONS (16)
  - ACUTE RESPIRATORY DISTRESS SYNDROME [None]
  - GASTROENTERITIS NOROVIRUS [None]
  - IMMUNOGLOBULINS DECREASED [None]
  - LISTERIA SEPSIS [None]
  - LISTERIOSIS [None]
  - LOSS OF CONSCIOUSNESS [None]
  - LUNG DISORDER [None]
  - MALIGNANT NEOPLASM PROGRESSION [None]
  - MENINGITIS LISTERIA [None]
  - PARANEOPLASTIC SYNDROME [None]
  - PNEUMOCYSTIS JIROVECI PNEUMONIA [None]
  - PNEUMONIA [None]
  - PNEUMONIA CYTOMEGALOVIRAL [None]
  - PNEUMONIA HERPES VIRAL [None]
  - PYREXIA [None]
  - RESPIRATORY FAILURE [None]
